FAERS Safety Report 5663596-8 (Version None)
Quarter: 2008Q1

REPORT INFORMATION
  Report Type: 
  Country: None (occurrence: None)
  Receive Date: 20080313
  Receipt Date: 20080220
  Transmission Date: 20080703
  Serious: No
  Sender: FDA-Public Use
  Company Number: US-BOEHRINGER INGELHEIM GMBH, GERMANY-2008-BP-02580BP

PATIENT
  Age: 78 Year
  Sex: Female

DRUGS (5)
  1. SPIRIVA [Suspect]
     Indication: EMPHYSEMA
     Route: 055
     Dates: start: 20071201, end: 20080219
  2. ALBUTEROL [Concomitant]
  3. ATROVENT [Concomitant]
  4. LIPITOR [Concomitant]
     Indication: BLOOD CHOLESTEROL INCREASED
  5. OXYGEN [Concomitant]

REACTIONS (2)
  - ALOPECIA [None]
  - DRY MOUTH [None]
